FAERS Safety Report 9157778 (Version 1)
Quarter: 2013Q1

REPORT INFORMATION
  Report Type: Spontaneous
  Country: US (occurrence: None)
  Receive Date: 20130311
  Receipt Date: 20130311
  Transmission Date: 20140127
  Serious: Yes (Other)
  Sender: FDA-Public Use
  Company Number: None

PATIENT
  Age: 58 Year
  Sex: Female
  Weight: 64.86 kg

DRUGS (1)
  1. XARELTO [Suspect]
     Indication: PULMONARY THROMBOSIS
     Route: 048
     Dates: start: 20130131, end: 20130310

REACTIONS (14)
  - Local swelling [None]
  - Joint swelling [None]
  - Epistaxis [None]
  - Fatigue [None]
  - Insomnia [None]
  - Abdominal discomfort [None]
  - Cough [None]
  - Vomiting [None]
  - Throat tightness [None]
  - Contusion [None]
  - Pruritus [None]
  - Dyspnoea [None]
  - Fear [None]
  - Economic problem [None]
